FAERS Safety Report 6824527-8 (Version None)
Quarter: 2010Q3

REPORT INFORMATION
  Report Type: 
  Country: None (occurrence: None)
  Receive Date: 20100708
  Receipt Date: 20100701
  Transmission Date: 20110219
  Serious: Yes (Disabling)
  Sender: FDA-Public Use
  Company Number: US-MERCK-1007USA00293

PATIENT
  Sex: Male

DRUGS (5)
  1. ZETIA [Suspect]
     Route: 048
  2. LEXAPRO [Concomitant]
     Route: 065
  3. XANAX [Concomitant]
     Route: 065
  4. LIPITOR [Concomitant]
     Route: 065
  5. LEVITRA [Concomitant]
     Route: 065

REACTIONS (6)
  - ABDOMINAL PAIN [None]
  - ANXIETY [None]
  - BACK PAIN [None]
  - ERECTILE DYSFUNCTION [None]
  - PYREXIA [None]
  - TENDON DISORDER [None]
